FAERS Safety Report 22281804 (Version 1)
Quarter: 2023Q2

REPORT INFORMATION
  Report Type: Other
  Country: US (occurrence: None)
  Receive Date: 20230504
  Receipt Date: 20230504
  Transmission Date: 20230721
  Serious: Yes (Hospitalization)
  Sender: FDA-Public Use
  Company Number: US-ROCHE-3339120

PATIENT
  Age: 69 Year
  Sex: Female
  Weight: 52.664 kg

DRUGS (3)
  1. OCREVUS [Suspect]
     Active Substance: OCRELIZUMAB
     Indication: Relapsing-remitting multiple sclerosis
     Dosage: DATE OF TREATMENT: 12/OCT/2022, 12/APR/2022
     Route: 042
     Dates: start: 20180123
  2. KEFLEX [Concomitant]
     Active Substance: CEPHALEXIN
     Indication: Urinary tract infection
  3. CEPHALOSPORIN C [Concomitant]
     Active Substance: CEPHALOSPORIN C
     Dates: start: 20230320, end: 20230326

REACTIONS (3)
  - Sepsis [Unknown]
  - Urinary tract infection [Unknown]
  - COVID-19 [Unknown]

NARRATIVE: CASE EVENT DATE: 20230301
